FAERS Safety Report 9731777 (Version 1)
Quarter: 2013Q4

REPORT INFORMATION
  Report Type: Spontaneous
  Country: US (occurrence: US)
  Receive Date: 20131205
  Receipt Date: 20131205
  Transmission Date: 20140711
  Serious: No
  Sender: FDA-Public Use
  Company Number: US-ENDO PHARMACEUTICALS INC.-METH20120005

PATIENT
  Age: 65 Year
  Sex: Male

DRUGS (2)
  1. METHYLPREDNISOLONE TABLETS [Suspect]
     Indication: DERMATITIS CONTACT
     Dosage: 4 MG
     Route: 048
     Dates: start: 20120404, end: 201204
  2. BENADRYL [Concomitant]
     Indication: DERMATITIS CONTACT
     Dosage: UNK
     Route: 048
     Dates: start: 201204

REACTIONS (1)
  - Abdominal discomfort [Recovering/Resolving]
